FAERS Safety Report 9422525 (Version 4)
Quarter: 2014Q2

REPORT INFORMATION
  Report Type: Report from Study
  Country: JP (occurrence: JP)
  Receive Date: 20130726
  Receipt Date: 20140606
  Transmission Date: 20141212
  Serious: Yes (Death, Life-Threatening, Hospitalization, Other)
  Sender: FDA-Public Use
  Company Number: JP-CELGENEUS-087-50794-11073329

PATIENT
  Age: 74 Year
  Sex: Female
  Weight: 41 kg

DRUGS (55)
  1. VIDAZA [Suspect]
     Indication: MYELODYSPLASTIC SYNDROME
     Dosage: 75 MILLIGRAM/SQ. METER
     Route: 041
     Dates: start: 20110412, end: 20110417
  2. VIDAZA [Suspect]
     Route: 041
     Dates: start: 20110516, end: 20110522
  3. VIDAZA [Suspect]
     Route: 058
     Dates: start: 20110627, end: 20110702
  4. VIDAZA [Suspect]
     Route: 058
     Dates: start: 20110801, end: 20110807
  5. VIDAZA [Suspect]
     Route: 058
     Dates: start: 20110905, end: 20110911
  6. VIDAZA [Suspect]
     Route: 058
     Dates: start: 20111003, end: 20111009
  7. VIDAZA [Suspect]
     Dosage: 75 MILLIGRAM/SQ. METER
     Route: 058
     Dates: start: 20111206, end: 20111212
  8. VIDAZA [Suspect]
     Route: 058
     Dates: start: 20120110, end: 20120114
  9. VIDAZA [Suspect]
     Route: 058
     Dates: start: 20120206, end: 20120210
  10. VIDAZA [Suspect]
     Route: 058
     Dates: start: 20120326, end: 20120328
  11. VIDAZA [Suspect]
     Route: 058
     Dates: start: 20120423, end: 20120425
  12. VIDAZA [Suspect]
     Route: 058
     Dates: start: 20120521, end: 20120523
  13. VIDAZA [Suspect]
     Route: 058
     Dates: start: 20120611, end: 20120615
  14. VIDAZA [Suspect]
     Route: 058
     Dates: start: 20120709, end: 20120713
  15. VIDAZA [Suspect]
     Route: 058
     Dates: start: 20120806, end: 20120810
  16. VIDAZA [Suspect]
     Route: 058
     Dates: start: 20120903, end: 20120907
  17. VIDAZA [Suspect]
     Route: 058
     Dates: start: 20121001, end: 20121005
  18. VIDAZA [Suspect]
     Route: 058
     Dates: start: 20121105, end: 20121109
  19. VIDAZA [Suspect]
     Route: 058
     Dates: start: 20121203, end: 20121207
  20. VIDAZA [Suspect]
     Route: 058
     Dates: start: 20130107, end: 20130115
  21. VIDAZA [Suspect]
     Route: 058
     Dates: start: 20130204, end: 20130213
  22. VIDAZA [Suspect]
     Route: 058
     Dates: start: 20130325, end: 20130402
  23. DIFLUCAN [Concomitant]
     Indication: PRODUCT USED FOR UNKNOWN INDICATION
     Route: 065
     Dates: start: 20110413
  24. MUCOSTA [Concomitant]
     Indication: PRODUCT USED FOR UNKNOWN INDICATION
     Route: 065
  25. PROTECADIN [Concomitant]
     Indication: PRODUCT USED FOR UNKNOWN INDICATION
     Route: 065
     Dates: start: 20110413
  26. GLAKAY [Concomitant]
     Indication: PRODUCT USED FOR UNKNOWN INDICATION
     Route: 065
  27. ROCALTROL [Concomitant]
     Indication: PRODUCT USED FOR UNKNOWN INDICATION
     Route: 065
  28. RYTHMODAN [Concomitant]
     Indication: PRODUCT USED FOR UNKNOWN INDICATION
     Route: 065
  29. LENOGRASTIM [Concomitant]
     Indication: PRODUCT USED FOR UNKNOWN INDICATION
     Route: 065
     Dates: start: 20110420, end: 20110506
  30. LENOGRASTIM [Concomitant]
     Route: 065
     Dates: start: 20110608, end: 20110610
  31. LENOGRASTIM [Concomitant]
     Route: 065
     Dates: start: 20110611, end: 20110619
  32. LENOGRASTIM [Concomitant]
     Route: 065
     Dates: start: 20130423, end: 20130505
  33. CEFEPIME [Concomitant]
     Indication: PRODUCT USED FOR UNKNOWN INDICATION
     Route: 065
     Dates: start: 20110418, end: 20110425
  34. CEFEPIME [Concomitant]
     Route: 065
     Dates: start: 20110608, end: 20110610
  35. CEFEPIME [Concomitant]
     Route: 065
     Dates: start: 20130307, end: 20130311
  36. CEFEPIME [Concomitant]
     Route: 065
     Dates: start: 20130418, end: 20130424
  37. SULBACTAM [Concomitant]
     Indication: PRODUCT USED FOR UNKNOWN INDICATION
     Route: 065
     Dates: start: 20110611, end: 20110619
  38. SULBACTAM [Concomitant]
     Route: 065
     Dates: start: 20130425, end: 20130428
  39. PANTOSIN [Concomitant]
     Indication: PRODUCT USED FOR UNKNOWN INDICATION
     Route: 065
     Dates: start: 20110422
  40. MAGLAX [Concomitant]
     Indication: PRODUCT USED FOR UNKNOWN INDICATION
     Route: 065
     Dates: start: 20110422
  41. CRAVIT [Concomitant]
     Indication: PRODUCT USED FOR UNKNOWN INDICATION
     Route: 065
     Dates: start: 20110418, end: 20110421
  42. CRAVIT [Concomitant]
     Route: 065
     Dates: start: 20110606, end: 20110610
  43. CALONAL [Concomitant]
     Indication: PRODUCT USED FOR UNKNOWN INDICATION
     Route: 065
     Dates: start: 20110606, end: 20110620
  44. VITAMIN K2 [Concomitant]
     Indication: PRODUCT USED FOR UNKNOWN INDICATION
     Route: 065
  45. VITAMIN D3 [Concomitant]
     Indication: PRODUCT USED FOR UNKNOWN INDICATION
     Route: 065
  46. NAVOBAN [Concomitant]
     Indication: PRODUCT USED FOR UNKNOWN INDICATION
     Route: 065
     Dates: start: 20110627
  47. EDIROL [Concomitant]
     Indication: PRODUCT USED FOR UNKNOWN INDICATION
     Route: 065
  48. CLINDAMYCIN [Concomitant]
     Indication: PRODUCT USED FOR UNKNOWN INDICATION
     Route: 065
     Dates: start: 20130312, end: 20130315
  49. CLINDAMYCIN [Concomitant]
     Route: 065
     Dates: start: 20130503, end: 20130505
  50. GRAN [Concomitant]
     Indication: PRODUCT USED FOR UNKNOWN INDICATION
     Route: 065
     Dates: start: 20130418, end: 20130422
  51. FINIBAX [Concomitant]
     Indication: PRODUCT USED FOR UNKNOWN INDICATION
     Route: 065
     Dates: start: 20130429, end: 20130502
  52. RED BLOOD CELLS [Concomitant]
     Indication: PRODUCT USED FOR UNKNOWN INDICATION
     Route: 041
  53. SULBACILLIN [Concomitant]
     Indication: PRODUCT USED FOR UNKNOWN INDICATION
     Route: 065
     Dates: start: 20110611, end: 20110619
  54. SULBACILLIN [Concomitant]
     Route: 065
     Dates: start: 20130425, end: 20130428
  55. GENINAX [Concomitant]
     Indication: PRODUCT USED FOR UNKNOWN INDICATION
     Route: 065

REACTIONS (9)
  - Pneumonia [Fatal]
  - Platelet count decreased [Not Recovered/Not Resolved]
  - Haemoglobin decreased [Unknown]
  - Febrile neutropenia [Recovered/Resolved]
  - Febrile neutropenia [Recovered/Resolved]
  - White blood cell count decreased [Not Recovered/Not Resolved]
  - Platelet count decreased [Not Recovered/Not Resolved]
  - Pneumonia [Recovered/Resolved]
  - Platelet count decreased [Recovered/Resolved]
